FAERS Safety Report 4279182-0 (Version None)
Quarter: 2004Q1

REPORT INFORMATION
  Report Type: 
  Country: None (occurrence: None)
  Receive Date: 20040123
  Receipt Date: 20040123
  Transmission Date: 20041129
  Serious: Yes (Hospitalization)
  Sender: FDA-Public Use
  Company Number: None

PATIENT
  Age: 73 Year
  Sex: Female
  Weight: 60.782 kg

DRUGS (3)
  1. TAXOTERE [Suspect]
     Indication: OESOPHAGEAL ADENOCARCINOMA
     Dosage: .1-}66MG D 1+8 IV
     Route: 042
     Dates: start: 20031212, end: 20031219
  2. XELODA [Suspect]
     Dosage: 2300 MG ALT WITH 3500MG PO D1-10
     Route: 048
     Dates: start: 20031212, end: 20031221
  3. CARBOPLATIN [Suspect]
     Dosage: 153 MG D1+8 IV
     Route: 042

REACTIONS (3)
  - ASTHENIA [None]
  - DEHYDRATION [None]
  - DIARRHOEA [None]
